FAERS Safety Report 16614000 (Version 6)
Quarter: 2021Q3

REPORT INFORMATION
  Report Type: Report from Study
  Country: FR (occurrence: FR)
  Receive Date: 20190723
  Receipt Date: 20210921
  Transmission Date: 20211014
  Serious: Yes (Hospitalization)
  Sender: FDA-Public Use
  Company Number: FR-ROCHE-2356623

PATIENT
  Age: 62 Year
  Sex: Male

DRUGS (24)
  1. OBINUTUZUMAB. [Suspect]
     Active Substance: OBINUTUZUMAB
     Dosage: 1000 MILLIGRAM 1 TIME(S) EVERY CYCLICAL / CYCLE 10, D1 EVERY 2 CYCLES
     Route: 042
     Dates: start: 20190709, end: 20190709
  2. LAROXYL [Concomitant]
     Active Substance: AMITRIPTYLINE HYDROCHLORIDE
     Indication: PARAESTHESIA
     Dates: start: 20190607
  3. TEMERITDUO [Concomitant]
     Active Substance: HYDROCHLOROTHIAZIDE\NEBIVOLOL HYDROCHLORIDE
     Indication: HYPERTENSION
     Dates: start: 201907
  4. OBINUTUZUMAB. [Suspect]
     Active Substance: OBINUTUZUMAB
     Indication: MANTLE CELL LYMPHOMA
     Dosage: CYCLE 1: 100MG AT D1 AND 900MG AT D2; 1000MG AT D8 AND D15
     Route: 065
     Dates: start: 20180917, end: 20181001
  5. VENETOCLAX. [Suspect]
     Active Substance: VENETOCLAX
     Route: 065
     Dates: start: 20190122, end: 20190414
  6. IBRUTINIB [Suspect]
     Active Substance: IBRUTINIB
     Route: 065
     Dates: start: 20190122, end: 20190414
  7. TEMERITDUO [Concomitant]
     Active Substance: HYDROCHLOROTHIAZIDE\NEBIVOLOL HYDROCHLORIDE
     Dates: start: 201907
  8. CREON [Concomitant]
     Active Substance: PANCRELIPASE AMYLASE\PANCRELIPASE LIPASE\PANCRELIPASE PROTEASE
  9. IBRUTINIB [Suspect]
     Active Substance: IBRUTINIB
     Indication: MANTLE CELL LYMPHOMA
     Route: 065
     Dates: start: 20180918, end: 20190106
  10. EUCREAS [Concomitant]
     Active Substance: METFORMIN HYDROCHLORIDE\VILDAGLIPTIN
     Dates: start: 201707
  11. VENETOCLAX. [Suspect]
     Active Substance: VENETOCLAX
     Indication: MANTLE CELL LYMPHOMA
     Route: 065
     Dates: start: 20181015, end: 20181021
  12. VENETOCLAX. [Suspect]
     Active Substance: VENETOCLAX
     Route: 065
     Dates: start: 20181105, end: 20181111
  13. VENETOCLAX. [Suspect]
     Active Substance: VENETOCLAX
     Route: 065
     Dates: start: 20190416, end: 20190710
  14. NOVORAPID [Concomitant]
     Active Substance: INSULIN ASPART
     Dates: start: 201707
  15. EUCREAS [Concomitant]
     Active Substance: METFORMIN HYDROCHLORIDE\VILDAGLIPTIN
     Dates: start: 201707
  16. VENETOCLAX. [Suspect]
     Active Substance: VENETOCLAX
     Route: 065
     Dates: start: 20181022, end: 20181028
  17. VENETOCLAX. [Suspect]
     Active Substance: VENETOCLAX
     Route: 065
     Dates: start: 20181112, end: 20190106
  18. KARDEGIC [Concomitant]
     Active Substance: ASPIRIN DL-LYSINE
     Indication: HYPERTENSION
     Dates: start: 201907
  19. OBINUTUZUMAB. [Suspect]
     Active Substance: OBINUTUZUMAB
     Dosage: 1000 MILLIGRAM EVERY 1 CYCLICAL / FROM CYCLE 1BIS TO CYCLE 6, D1 OF EACH CYCLE
     Route: 042
     Dates: start: 20181015, end: 20190319
  20. OBINUTUZUMAB. [Suspect]
     Active Substance: OBINUTUZUMAB
     Dosage: 1000 MILLIGRAM EVERY 1 CYCLICAL / CYCLE 8, D1 EVERY 2 CYCLES
     Route: 042
     Dates: start: 20190514, end: 20190514
  21. VENETOCLAX. [Suspect]
     Active Substance: VENETOCLAX
     Route: 065
     Dates: start: 20181029, end: 20181104
  22. IBRUTINIB [Suspect]
     Active Substance: IBRUTINIB
     Route: 065
     Dates: start: 20190415, end: 20190710
  23. LYRICA [Concomitant]
     Active Substance: PREGABALIN
     Indication: PARAESTHESIA
     Dates: start: 20190607
  24. TOUJEO [Concomitant]
     Active Substance: INSULIN GLARGINE

REACTIONS (1)
  - Acute polyneuropathy [Recovering/Resolving]

NARRATIVE: CASE EVENT DATE: 20190614
